FAERS Safety Report 14375015 (Version 1)
Quarter: 2018Q1

REPORT INFORMATION
  Report Type: Report from Study
  Country: None (occurrence: HU)
  Receive Date: 20180111
  Receipt Date: 20180111
  Transmission Date: 20180509
  Serious: Yes (Hospitalization)
  Sender: FDA-Public Use
  Company Number: HU-ABBVIE-18K-076-2218104-00

PATIENT
  Age: 61 Year
  Sex: Male

DRUGS (5)
  1. L-THYROXIN [Concomitant]
     Active Substance: LEVOTHYROXINE SODIUM
     Indication: HYPOTHYROIDISM
     Dosage: 1 TABLET IN THE MORNING
     Route: 048
     Dates: start: 2003
  2. PANTOPRAZOLE [Concomitant]
     Active Substance: PANTOPRAZOLE
     Indication: PROPHYLAXIS
     Route: 048
  3. DUODOPA [Suspect]
     Active Substance: CARBIDOPA\LEVODOPA
     Indication: PARKINSON^S DISEASE
     Dosage: MORNING DOSE 8ML; CONTINUOUS DOSE 4.7ML/H;EXTRA DOSE 3ML
     Route: 050
     Dates: start: 201303
  4. TAMSULOSIN [Concomitant]
     Active Substance: TAMSULOSIN
     Indication: BENIGN PROSTATIC HYPERPLASIA
     Dosage: IN THE EVENING
     Route: 048
     Dates: start: 20180102
  5. MADOPAR [Concomitant]
     Active Substance: BENSERAZIDE HYDROCHLORIDE\LEVODOPA
     Indication: PARKINSON^S DISEASE
     Dosage: 100/20 MG?2 TABLETS IN THE EVENINGS
     Route: 048
     Dates: start: 2003

REACTIONS (4)
  - Diverticulitis [Recovered/Resolved]
  - Cholelithiasis [Unknown]
  - Abdominal pain [Recovering/Resolving]
  - Vomiting [Recovered/Resolved]

NARRATIVE: CASE EVENT DATE: 20171224
